FAERS Safety Report 4764516-0 (Version None)
Quarter: 2005Q3

REPORT INFORMATION
  Report Type: 
  Country: None (occurrence: None)
  Receive Date: 20050906
  Receipt Date: 20050824
  Transmission Date: 20060218
  Serious: Yes (Other)
  Sender: FDA-Public Use
  Company Number: USA0506101601

PATIENT
  Age: 33 Year
  Sex: Female
  Weight: 80 kg

DRUGS (5)
  1. CYMBALTA [Suspect]
     Indication: MAJOR DEPRESSION
     Dosage: 60 MG
     Dates: start: 20041201, end: 20050301
  2. COUMADIN [Concomitant]
  3. ZANAFLEX [Concomitant]
  4. NEURONTIN [Concomitant]
  5. OXYCODONE HYDROCHLORIDE W/PARACETAMOL [Concomitant]

REACTIONS (3)
  - HYPERTENSION [None]
  - MULTIPLE SCLEROSIS [None]
  - TRANSIENT ISCHAEMIC ATTACK [None]
